FAERS Safety Report 14660908 (Version 3)
Quarter: 2018Q2

REPORT INFORMATION
  Report Type: Spontaneous
  Country: DK (occurrence: DK)
  Receive Date: 20180320
  Receipt Date: 20180423
  Transmission Date: 20180711
  Serious: Yes (Other)
  Sender: FDA-Public Use
  Company Number: DK-CELGENEUS-DNK-20180301183

PATIENT
  Age: 74 Year
  Sex: Female

DRUGS (16)
  1. CAPOX [Concomitant]
     Indication: PLASMA CELL MYELOMA
     Route: 065
  2. ALKERAN [Concomitant]
     Active Substance: MELPHALAN
     Indication: PLASMA CELL MYELOMA
     Route: 065
  3. AVASTIN [Concomitant]
     Active Substance: BEVACIZUMAB
     Indication: PLASMA CELL MYELOMA
     Route: 065
  4. FOLTEN [Concomitant]
     Indication: PLASMA CELL MYELOMA
     Route: 065
  5. THALIDOMIDE [Suspect]
     Active Substance: THALIDOMIDE
     Indication: PLASMA CELL MYELOMA
     Route: 065
  6. VINORELBINE [Concomitant]
     Active Substance: VINORELBINE\VINORELBINE TARTRATE
     Indication: PLASMA CELL MYELOMA
     Route: 065
  7. PAMIDRONATE [Concomitant]
     Active Substance: PAMIDRONATE DISODIUM
     Indication: PLASMA CELL MYELOMA
     Route: 065
  8. IMATINIB [Concomitant]
     Active Substance: IMATINIB
     Indication: PLASMA CELL MYELOMA
     Route: 065
  9. IRINOTECAN [Concomitant]
     Active Substance: IRINOTECAN
     Indication: PLASMA CELL MYELOMA
     Route: 065
  10. CYCLOPHOSPHAMIDE. [Concomitant]
     Active Substance: CYCLOPHOSPHAMIDE
     Indication: PLASMA CELL MYELOMA
     Route: 065
  11. TEMOZOLOMIDE. [Concomitant]
     Active Substance: TEMOZOLOMIDE
     Indication: PLASMA CELL MYELOMA
     Route: 065
  12. AREDIA [Concomitant]
     Active Substance: PAMIDRONATE DISODIUM
     Indication: PLASMA CELL MYELOMA
     Route: 065
  13. CISPLATIN. [Concomitant]
     Active Substance: CISPLATIN
     Indication: PLASMA CELL MYELOMA
     Route: 065
  14. ALIMTA [Concomitant]
     Active Substance: PEMETREXED DISODIUM
     Indication: PLASMA CELL MYELOMA
     Route: 065
  15. CARBOPLATIN. [Concomitant]
     Active Substance: CARBOPLATIN
     Indication: PLASMA CELL MYELOMA
     Route: 065
  16. CETUXIMAB. [Concomitant]
     Active Substance: CETUXIMAB
     Indication: PLASMA CELL MYELOMA
     Route: 065

REACTIONS (1)
  - Osteonecrosis of jaw [Recovered/Resolved]

NARRATIVE: CASE EVENT DATE: 20120924
